FAERS Safety Report 5759366-2 (Version None)
Quarter: 2008Q2

REPORT INFORMATION
  Report Type: 
  Country: None (occurrence: None)
  Receive Date: 20080507
  Receipt Date: 20071204
  Transmission Date: 20081010
  Serious: Yes (Hospitalization)
  Sender: FDA-Public Use
  Company Number: 230955J07USA

PATIENT
  Age: 57 Year
  Sex: Female
  Weight: 62.1428 kg

DRUGS (9)
  1. REBIF [Suspect]
     Indication: MULTIPLE SCLEROSIS
     Dosage: 44 MCG, 3 IN 1 WEEKS, SUBCUTANEOUS
     Route: 058
     Dates: start: 20060322
  2. XANAX [Concomitant]
  3. NEXIUM [Concomitant]
  4. CARISOPRODOL [Concomitant]
  5. OXYCONTIN [Concomitant]
  6. IMITREX [Concomitant]
  7. STEROIDS (CORTICOSTEROID NOS) [Concomitant]
  8. PROZAC [Concomitant]
  9. CYMBALTA [Concomitant]

REACTIONS (1)
  - DEPRESSION [None]
